FAERS Safety Report 5342055-6 (Version None)
Quarter: 2007Q2

REPORT INFORMATION
  Report Type: 
  Country: None (occurrence: None)
  Receive Date: 20070530
  Receipt Date: 20070530
  Transmission Date: 20071010
  Serious: Yes (Death, Hospitalization)
  Sender: FDA-Public Use
  Company Number: None

PATIENT
  Age: 95 Year
  Sex: Female
  Weight: 56.9 kg

DRUGS (3)
  1. RANEXA [Suspect]
     Indication: ANGINA PECTORIS
     Dosage: 1000 MG BID PO
     Route: 048
     Dates: start: 20070525, end: 20070528
  2. RANEXA [Suspect]
     Indication: CORONARY ARTERY DISEASE
     Dosage: 1000 MG BID PO
     Route: 048
     Dates: start: 20070525, end: 20070528
  3. COGENTIN [Suspect]
     Indication: EXTRAPYRAMIDAL DISORDER
     Dosage: 1 MG ONCE IV
     Route: 042
     Dates: start: 20070529, end: 20070529

REACTIONS (10)
  - AGONAL DEATH STRUGGLE [None]
  - CHEST PAIN [None]
  - CONFUSIONAL STATE [None]
  - DYSTONIA [None]
  - EXTRAPYRAMIDAL DISORDER [None]
  - MOTOR DYSFUNCTION [None]
  - MUSCLE SPASMS [None]
  - RESPIRATORY ARREST [None]
  - RESPIRATORY DISTRESS [None]
  - SPEECH DISORDER [None]
